FAERS Safety Report 9161998 (Version 2)
Quarter: 2013Q2

REPORT INFORMATION
  Report Type: Spontaneous
  Country: US (occurrence: None)
  Receive Date: 20130225
  Receipt Date: 20130402
  Transmission Date: 20140414
  Serious: Yes (Hospitalization)
  Sender: FDA-Public Use
  Company Number: 2013-02579

PATIENT
  Age: 39 Year
  Sex: Female
  Weight: 79 kg

DRUGS (2)
  1. HYDROCODONE BITARTRATE [Suspect]
     Indication: PAIN
     Route: 048
     Dates: start: 20130109, end: 20130117
  2. VICODIN HP [Suspect]
     Route: 048
     Dates: start: 20130109, end: 20130117

REACTIONS (6)
  - Road traffic accident [None]
  - Injury [None]
  - Intestinal perforation [None]
  - Rib fracture [None]
  - Pneumothorax [None]
  - Contusion [None]
